FAERS Safety Report 4505216-1 (Version None)
Quarter: 2004Q4

REPORT INFORMATION
  Report Type: 
  Country: None (occurrence: None)
  Receive Date: 20041015
  Receipt Date: 20040715
  Transmission Date: 20050328
  Serious: Yes (Other)
  Sender: FDA-Public Use
  Company Number: 2004048064

PATIENT
  Sex: 0

DRUGS (1)
  1. NEURONTIN [Suspect]

REACTIONS (2)
  - AGITATION [None]
  - SUICIDAL IDEATION [None]
